FAERS Safety Report 4565293-9 (Version None)
Quarter: 2005Q1

REPORT INFORMATION
  Report Type: 
  Country: None (occurrence: None)
  Receive Date: 20050124
  Receipt Date: 20050107
  Transmission Date: 20050727
  Serious: Yes (Hospitalization, Other)
  Sender: FDA-Public Use
  Company Number: 601730

PATIENT
  Age: 14 Month
  Sex: Male

DRUGS (3)
  1. ADVATE (ANTIHEMOPHLIC FACTOR (RECOMBINANT) ALBUMIN FREE METHOD) [Suspect]
     Indication: HAEMOPHILIA
     Dosage: 250  IU; PRN; SUBCUTANEOUS
     Route: 058
     Dates: start: 20040502, end: 20040501
  2. ADVATE (ANTIHEMOPHLIC FACTOR (RECOMBINANT) ALBUMIN FREE METHOD) [Suspect]
     Indication: SUBDURAL HAEMATOMA
     Dosage: 250  IU; PRN; SUBCUTANEOUS
     Route: 058
     Dates: start: 20040502, end: 20040501
  3. DEPAKENE [Concomitant]

REACTIONS (1)
  - INHIBITING ANTIBODIES [None]
